FAERS Safety Report 11272588 (Version 3)
Quarter: 2015Q4

REPORT INFORMATION
  Report Type: Report from Study
  Country: US (occurrence: US)
  Receive Date: 20150715
  Receipt Date: 20151111
  Transmission Date: 20160304
  Serious: Yes (Hospitalization, Other)
  Sender: FDA-Public Use
  Company Number: US-BAXALTA-2015BLT000398

PATIENT

DRUGS (22)
  1. CETIRIZINE HYDROCHLORIDE. [Concomitant]
     Active Substance: CETIRIZINE HYDROCHLORIDE
     Indication: HYPERSENSITIVITY
     Dosage: 10 MG, 1X A DAY
     Route: 048
     Dates: start: 201406
  2. AZITHROMYCIN [Concomitant]
     Active Substance: AZITHROMYCIN ANHYDROUS
     Indication: PNEUMONIA
     Dosage: 500 MG, 1X A DAY
     Route: 042
     Dates: start: 20150629, end: 20150706
  3. IPRATROPIUM BROMIDE, SALBUTAMOL SULFATE [Concomitant]
     Indication: PNEUMONIA
  4. SALBUTAMOL SULFATE [Concomitant]
     Active Substance: ALBUTEROL SULFATE
     Indication: PNEUMONIA
     Dosage: 90 MG, EVERY 6 HOURS AS NEEDED; ROUTE: INHALATION
     Route: 050
     Dates: start: 20150629, end: 20150710
  5. DEXTROMETHORPHAN HYDROBROMIDE, GUAIFENESIN [Concomitant]
     Indication: PNEUMONIA
     Dosage: 10 ML, X4 HOURS AS NEEDED
     Route: 048
     Dates: start: 20150701, end: 20150710
  6. PEGYLATED RECOMVINANT FACTOR VIII [Suspect]
     Active Substance: ANTIHEMOPHILIC FACTOR, PEGYLATED (MW 20000) HUMAN SEQUENCE RECOMBINANT
     Dosage: 43 IU/KG, ONCE
     Route: 042
     Dates: start: 20131122, end: 20131122
  7. PEGYLATED RECOMVINANT FACTOR VIII [Suspect]
     Active Substance: ANTIHEMOPHILIC FACTOR, PEGYLATED (MW 20000) HUMAN SEQUENCE RECOMBINANT
     Dosage: UNK
     Dates: start: 20150701, end: 20150701
  8. IPRATROPIUM BROMIDE, SALBUTAMOL SULFATE [Concomitant]
     Indication: BRONCHOSPASM
     Dosage: 3 ML, 6X A DAY
     Route: 055
     Dates: start: 20150629, end: 20150705
  9. PEGYLATED RECOMVINANT FACTOR VIII [Suspect]
     Active Substance: ANTIHEMOPHILIC FACTOR, PEGYLATED (MW 20000) HUMAN SEQUENCE RECOMBINANT
     Dosage: UNK
     Dates: start: 20150702, end: 20150713
  10. LOSARTAN POTASSIUM. [Concomitant]
     Active Substance: LOSARTAN POTASSIUM
     Indication: HYPERTENSION
     Dosage: 100 MG, 1X A DAY
     Route: 048
     Dates: start: 20140329
  11. CELECOXIB. [Concomitant]
     Active Substance: CELECOXIB
     Indication: HAEMOPHILIC ARTHROPATHY
     Dosage: 200 MG, 1X A DAY
     Route: 048
     Dates: start: 201309
  12. PEGYLATED RECOMVINANT FACTOR VIII [Suspect]
     Active Substance: ANTIHEMOPHILIC FACTOR, PEGYLATED (MW 20000) HUMAN SEQUENCE RECOMBINANT
     Dosage: 30 IU/KG, 1X A DAY
     Route: 042
     Dates: start: 20150702, end: 20150713
  13. PEGYLATED RECOMVINANT FACTOR VIII [Suspect]
     Active Substance: ANTIHEMOPHILIC FACTOR, PEGYLATED (MW 20000) HUMAN SEQUENCE RECOMBINANT
     Dosage: UNK
     Dates: start: 20150715
  14. PEGYLATED RECOMVINANT FACTOR VIII [Suspect]
     Active Substance: ANTIHEMOPHILIC FACTOR, PEGYLATED (MW 20000) HUMAN SEQUENCE RECOMBINANT
     Indication: PROPHYLAXIS
     Dosage: UNK UNK,
     Route: 042
     Dates: start: 20150624, end: 20150624
  15. PEGYLATED RECOMVINANT FACTOR VIII [Suspect]
     Active Substance: ANTIHEMOPHILIC FACTOR, PEGYLATED (MW 20000) HUMAN SEQUENCE RECOMBINANT
     Dosage: 60 IU/KG, EVERY 5 DAYS
     Route: 042
     Dates: start: 20150630, end: 20150630
  16. PEGYLATED RECOMVINANT FACTOR VIII [Suspect]
     Active Substance: ANTIHEMOPHILIC FACTOR, PEGYLATED (MW 20000) HUMAN SEQUENCE RECOMBINANT
     Dosage: UNK
     Dates: start: 20150630, end: 20150630
  17. PEGYLATED RECOMVINANT FACTOR VIII [Suspect]
     Active Substance: ANTIHEMOPHILIC FACTOR, PEGYLATED (MW 20000) HUMAN SEQUENCE RECOMBINANT
     Dosage: 60 IU/KG, EVERY 5 DAYS
     Route: 042
     Dates: start: 20150715
  18. PEGYLATED RECOMVINANT FACTOR VIII [Suspect]
     Active Substance: ANTIHEMOPHILIC FACTOR, PEGYLATED (MW 20000) HUMAN SEQUENCE RECOMBINANT
     Dosage: UNK
     Dates: start: 20150715
  19. CEFTRIAXONE SODIUM. [Concomitant]
     Active Substance: CEFTRIAXONE SODIUM
     Indication: PNEUMONIA
     Dosage: 2 G, 1X A DAY
     Route: 042
     Dates: start: 20150629, end: 20150706
  20. PEGYLATED RECOMVINANT FACTOR VIII [Suspect]
     Active Substance: ANTIHEMOPHILIC FACTOR, PEGYLATED (MW 20000) HUMAN SEQUENCE RECOMBINANT
     Indication: FACTOR VIII DEFICIENCY
     Dosage: 60 IU/KG, EVERY 5 DAYS
     Route: 042
     Dates: start: 20150624, end: 20150624
  21. PEGYLATED RECOMVINANT FACTOR VIII [Suspect]
     Active Substance: ANTIHEMOPHILIC FACTOR, PEGYLATED (MW 20000) HUMAN SEQUENCE RECOMBINANT
     Dosage: 60 IU/KG, ONCE
     Route: 042
     Dates: start: 20150701, end: 20150701
  22. CEFPODOXIME PROXETIL. [Concomitant]
     Active Substance: CEFPODOXIME PROXETIL
     Indication: PNEUMONIA
     Dosage: 200 MG, 2X A DAY
     Route: 048
     Dates: start: 20150706, end: 20150727

REACTIONS (1)
  - Pleural effusion [Recovered/Resolved]

NARRATIVE: CASE EVENT DATE: 20150629
